FAERS Safety Report 5371464-4 (Version None)
Quarter: 2007Q2

REPORT INFORMATION
  Report Type: 
  Country: None (occurrence: None)
  Receive Date: 20070615
  Receipt Date: 20061102
  Transmission Date: 20071010
  Serious: Yes (Other)
  Sender: FDA-Public Use
  Company Number: 200614875US

PATIENT
  Age: 35 Year
  Sex: Male
  Weight: 120.5 kg

DRUGS (7)
  1. LANTUS [Suspect]
     Indication: DIABETES MELLITUS NON-INSULIN-DEPENDENT
     Dates: start: 20060524
  2. OPTICLIK [Suspect]
     Indication: DIABETES MELLITUS NON-INSULIN-DEPENDENT
     Dates: start: 20060524
  3. METFORMIN HCL [Concomitant]
  4. ATORVASTATIN CALCIUM (LIPITOR) [Concomitant]
  5. LISINOPRIL [Concomitant]
  6. ASPIRIN [Concomitant]
  7. PANTOPRAZOLE SODIUM [Concomitant]

REACTIONS (1)
  - HYPERGLYCAEMIA [None]
